FAERS Safety Report 7296485-6 (Version None)
Quarter: 2011Q1

REPORT INFORMATION
  Report Type: 
  Country: None (occurrence: None)
  Receive Date: 20110216
  Receipt Date: 20110211
  Transmission Date: 20110831
  Serious: Yes (Death, Hospitalization)
  Sender: FDA-Public Use
  Company Number: IE-ELI_LILLY_AND_COMPANY-IE201101002966

PATIENT
  Sex: Male
  Weight: 76 kg

DRUGS (9)
  1. CISPLATIN [Suspect]
     Indication: NON-SMALL CELL LUNG CANCER
     Dosage: 75 MG/M2, EVERY 3 WEEKS
     Route: 042
     Dates: start: 20101130, end: 20101130
  2. OMESAR [Concomitant]
     Dosage: 20 MG, DAILY (1/D)
     Dates: start: 20080101
  3. CETUXIMAB [Suspect]
     Indication: NON-SMALL CELL LUNG CANCER
     Dosage: 250 MG/M2, WEEKLY (1/W)
     Route: 042
     Dates: start: 20101130, end: 20101214
  4. OTHER PHARMA COMPANY INV DRUG [Suspect]
     Indication: NON-SMALL CELL LUNG CANCER
     Dosage: 2000 MG, UNKNOWN
     Route: 042
     Dates: start: 20101130, end: 20101214
  5. LACTULOSE [Concomitant]
     Dosage: 20 MG, DAILY (1/D)
     Dates: start: 20101101
  6. ASPIRIN [Concomitant]
     Dosage: 75 MG, UNK
     Dates: start: 20080101
  7. SENNA [Concomitant]
     Dosage: 2 D/F, DAILY (1/D)
     Dates: start: 20101101
  8. GEMCITABINE HYDROCHLORIDE [Suspect]
     Indication: NON-SMALL CELL LUNG CANCER
     Dosage: 1250 MG/M2, UNKNOWN
     Route: 042
     Dates: start: 20101130, end: 20101130
  9. ZANIDIP [Concomitant]
     Dosage: 10 MG, DAILY (1/D)
     Dates: start: 20080101

REACTIONS (2)
  - PULMONARY THROMBOSIS [None]
  - PULMONARY EMBOLISM [None]
